FAERS Safety Report 9531072 (Version 1)
Quarter: 2013Q3

REPORT INFORMATION
  Report Type: Spontaneous
  Country: US (occurrence: US)
  Receive Date: 20130918
  Receipt Date: 20130918
  Transmission Date: 20140515
  Serious: No
  Sender: FDA-Public Use
  Company Number: US-BAYER-2013-111037

PATIENT
  Age: 90 Year
  Sex: Female
  Weight: 47 kg

DRUGS (4)
  1. ALEVE SMOOTH GELS [Suspect]
     Indication: ARTHRITIS
     Dosage: 1 DF, QD
     Route: 048
     Dates: start: 201309, end: 201309
  2. BAYER ASPIRIN REGIMEN ADULT LOW STRENGTH [Suspect]
     Route: 048
  3. SYNTHROID [Concomitant]
  4. CITRACAL [Concomitant]

REACTIONS (5)
  - Decreased appetite [Recovered/Resolved]
  - Constipation [Recovered/Resolved]
  - Abdominal discomfort [Recovered/Resolved]
  - Feeling abnormal [None]
  - Constipation [None]
